FAERS Safety Report 17352972 (Version 3)
Quarter: 2020Q1

REPORT INFORMATION
  Report Type: Report from Study
  Country: CA (occurrence: CA)
  Receive Date: 20200131
  Receipt Date: 20200325
  Transmission Date: 20200409
  Serious: Yes (Other)
  Sender: FDA-Public Use
  Company Number: CA-ROCHE-1335436

PATIENT
  Age: 21 Year
  Sex: Female
  Weight: 60.3 kg

DRUGS (14)
  1. LIDEX [Concomitant]
     Active Substance: FLUOCINONIDE
  2. RISEDRONATE [Concomitant]
     Active Substance: RISEDRONATE SODIUM
  3. CELLCEPT [Suspect]
     Active Substance: MYCOPHENOLATE MOFETIL\MYCOPHENOLATE MOFETIL HYDROCHLORIDE
     Indication: PEMPHIGUS
     Route: 065
     Dates: start: 2013, end: 2013
  4. ACETAMINOPHEN. [Concomitant]
     Active Substance: ACETAMINOPHEN
     Indication: PREMEDICATION
     Route: 048
     Dates: start: 20140114
  5. CLOBETASOL [Concomitant]
     Active Substance: CLOBETASOL
  6. BENADRYL [Concomitant]
     Active Substance: DIPHENHYDRAMINE HYDROCHLORIDE
     Indication: PREMEDICATION
     Route: 048
     Dates: start: 20140114
  7. METHYLPREDNISOLONE. [Concomitant]
     Active Substance: METHYLPREDNISOLONE
     Indication: PREMEDICATION
     Route: 042
     Dates: start: 20140114
  8. SOLU-MEDROL [Concomitant]
     Active Substance: METHYLPREDNISOLONE SODIUM SUCCINATE
     Indication: PREMEDICATION
     Route: 042
     Dates: start: 20140114
  9. RITUXAN [Suspect]
     Active Substance: RITUXIMAB
     Indication: PEMPHIGUS
     Route: 042
     Dates: start: 20140114
  10. DIPHENHYDRAMINE. [Concomitant]
     Active Substance: DIPHENHYDRAMINE
     Route: 048
     Dates: start: 20140114
  11. IMURAN [Concomitant]
     Active Substance: AZATHIOPRINE
  12. RITUXAN [Suspect]
     Active Substance: RITUXIMAB
     Dosage: FORMULATION: 10 MG/ML
     Route: 042
     Dates: start: 20131211
  13. CYCLOSPORINE. [Concomitant]
     Active Substance: CYCLOSPORINE
  14. TYLENOL [Concomitant]
     Active Substance: ACETAMINOPHEN
     Indication: PREMEDICATION
     Route: 048
     Dates: start: 20140114

REACTIONS (11)
  - Heart rate decreased [Unknown]
  - Hypotension [Unknown]
  - Hypotension [Unknown]
  - Fluid retention [Unknown]
  - Mouth ulceration [Unknown]
  - Pemphigus [Not Recovered/Not Resolved]
  - Infusion related reaction [Recovered/Resolved]
  - Off label use [Unknown]
  - Weight increased [Not Recovered/Not Resolved]
  - Intentional product use issue [Unknown]
  - Infusion related reaction [Recovered/Resolved]

NARRATIVE: CASE EVENT DATE: 20150716
